FAERS Safety Report 18866608 (Version 1)
Quarter: 2021Q1

REPORT INFORMATION
  Report Type: Spontaneous
  Country: US (occurrence: US)
  Receive Date: 20210208
  Receipt Date: 20210208
  Transmission Date: 20210420
  Serious: No
  Sender: FDA-Public Use
  Company Number: None

PATIENT
  Age: 27 Year
  Sex: Male
  Weight: 104 kg

DRUGS (1)
  1. ATOMOXETINE (ATOMOXETINE 80MG CAP) [Suspect]
     Active Substance: ATOMOXETINE
     Indication: ATTENTION DEFICIT HYPERACTIVITY DISORDER
     Route: 048
     Dates: start: 20200917, end: 20200917

REACTIONS (1)
  - Hepatic enzyme increased [None]

NARRATIVE: CASE EVENT DATE: 20200917
